FAERS Safety Report 7278390-4 (Version None)
Quarter: 2011Q1

REPORT INFORMATION
  Report Type: 
  Country: None (occurrence: None)
  Receive Date: 20110207
  Receipt Date: 20110126
  Transmission Date: 20110831
  Serious: Yes (Life-Threatening, Hospitalization, Disabling, Other)
  Sender: FDA-Public Use
  Company Number: US-MERCK-1003USA02383

PATIENT
  Age: 91 Year
  Sex: Female

DRUGS (1)
  1. JANUVIA [Suspect]
     Indication: TYPE 2 DIABETES MELLITUS
     Route: 048

REACTIONS (6)
  - PANCREATIC PSEUDOCYST [None]
  - RESPIRATORY FAILURE [None]
  - PANCREATITIS [None]
  - RENAL FAILURE ACUTE [None]
  - PANCYTOPENIA [None]
  - SEPSIS [None]
